FAERS Safety Report 24875067 (Version 1)
Quarter: 2025Q1

REPORT INFORMATION
  Report Type: Spontaneous
  Country: AU (occurrence: AU)
  Receive Date: 20250122
  Receipt Date: 20250122
  Transmission Date: 20250409
  Serious: Yes (Other)
  Sender: NOVA LABORATORIES LIMITED
  Company Number: AU-Nova Laboratories Limited-2169554

PATIENT
  Age: 32 Year
  Sex: Female

DRUGS (7)
  1. PURIXAN [Suspect]
     Active Substance: MERCAPTOPURINE
     Indication: Colitis ulcerative
     Dates: start: 2022, end: 202302
  2. FLUDROCORTISONE [Concomitant]
     Active Substance: FLUDROCORTISONE
  3. MESALAMINE [Suspect]
     Active Substance: MESALAMINE
  4. INFLIXIMAB [Suspect]
     Active Substance: INFLIXIMAB
     Dates: start: 2022, end: 202310
  5. INFLIXIMAB [Suspect]
     Active Substance: INFLIXIMAB
     Dates: end: 2022
  6. AZATHIOPRINE [Suspect]
     Active Substance: AZATHIOPRINE
  7. PREDNISOLONE [Concomitant]
     Active Substance: PREDNISOLONE

REACTIONS (3)
  - Alopecia areata [Recovered/Resolved]
  - Off label use [Unknown]
  - Alopecia universalis [Recovered/Resolved]

NARRATIVE: CASE EVENT DATE: 20221201
